FAERS Safety Report 5654606-2 (Version None)
Quarter: 2008Q1

REPORT INFORMATION
  Report Type: 
  Country: None (occurrence: None)
  Receive Date: 20080307
  Receipt Date: 20080227
  Transmission Date: 20080703
  Serious: Yes (Life-Threatening, Hospitalization, Disabling)
  Sender: FDA-Public Use
  Company Number: ES-JNJFOC-20080107614

PATIENT
  Sex: Male
  Weight: 76.2 kg

DRUGS (14)
  1. TMC114 [Suspect]
     Route: 048
  2. TMC114 [Suspect]
     Indication: HIV INFECTION
     Route: 048
  3. NORVIR [Suspect]
     Indication: HIV INFECTION
     Route: 048
  4. RETROVIR [Concomitant]
     Indication: HIV INFECTION
     Route: 048
  5. VIREAD [Concomitant]
     Indication: HIV INFECTION
     Route: 048
  6. FUZEON [Concomitant]
     Indication: HIV INFECTION
     Route: 065
  7. TRUVADA [Concomitant]
     Indication: HIV INFECTION
     Route: 065
  8. VITAMIN K [Concomitant]
     Route: 065
  9. URBASON [Concomitant]
     Route: 065
  10. DIURETICS [Concomitant]
     Route: 065
  11. ALBUMIN (HUMAN) [Concomitant]
     Route: 065
  12. AMOXICILLIN + CLAVULANATE POTASSIUM [Concomitant]
     Route: 065
  13. LEVOFLOXACIN [Concomitant]
     Route: 065
  14. CEFOTAXIME [Concomitant]
     Route: 065

REACTIONS (1)
  - HEPATIC FUNCTION ABNORMAL [None]
